FAERS Safety Report 13756882 (Version 1)
Quarter: 2017Q3

REPORT INFORMATION
  Report Type: Report from Study
  Country: US (occurrence: US)
  Receive Date: 20170714
  Receipt Date: 20170714
  Transmission Date: 20171127
  Serious: Yes (Death)
  Sender: FDA-Public Use
  Company Number: US-ACTELION-A-NJ2015-112872

PATIENT
  Age: 43 Year
  Sex: Female
  Weight: 49.89 kg

DRUGS (2)
  1. VELETRI [Suspect]
     Active Substance: EPOPROSTENOL
     Dosage: UNK
     Route: 042
  2. VELETRI [Suspect]
     Active Substance: EPOPROSTENOL
     Indication: PULMONARY ARTERIAL HYPERTENSION
     Dosage: 17.2 NG/KG, PER MIN
     Route: 042
     Dates: start: 20131122, end: 20170629

REACTIONS (12)
  - Hypersensitivity [Unknown]
  - Urinary tract infection [Unknown]
  - Hypoxia [Unknown]
  - Blood urine present [Unknown]
  - Influenza [Unknown]
  - Bronchitis [Unknown]
  - Sepsis [Unknown]
  - Death [Fatal]
  - Kidney infection [Unknown]
  - Pneumonia [Unknown]
  - Urticaria [Unknown]
  - Dyspnoea [Unknown]

NARRATIVE: CASE EVENT DATE: 201609
